FAERS Safety Report 9744336 (Version 1)
Quarter: 2013Q4

REPORT INFORMATION
  Report Type: Spontaneous
  Country: US (occurrence: US)
  Receive Date: 20131210
  Receipt Date: 20131210
  Transmission Date: 20140711
  Serious: Yes (Hospitalization, Other)
  Sender: FDA-Public Use
  Company Number: CHPA2013US018049

PATIENT
  Age: 75 Year
  Sex: Female

DRUGS (3)
  1. EX-LAX REG STR CHOCOLATED LAX PCS SEN [Suspect]
     Indication: LAXATIVE SUPPORTIVE CARE
     Dosage: UNK
     Route: 048
  2. CORRECTAL                          /00014501/ [Concomitant]
     Indication: LAXATIVE SUPPORTIVE CARE
     Dosage: UNK
  3. EX-LAX ^NOVARTIS^ [Concomitant]
     Indication: LAXATIVE SUPPORTIVE CARE
     Dosage: UNK

REACTIONS (2)
  - Blood count abnormal [Recovered/Resolved]
  - Glucose tolerance impaired [Unknown]
